FAERS Safety Report 9242992 (Version 1)
Quarter: 2013Q2

REPORT INFORMATION
  Report Type: Spontaneous
  Country: FR (occurrence: FR)
  Receive Date: 20130419
  Receipt Date: 20130419
  Transmission Date: 20140414
  Serious: Yes (Hospitalization)
  Sender: FDA-Public Use
  Company Number: FR-B.I. PHARMACEUTICALS,INC./RIDGEFIELD-2013-FF-01179FF

PATIENT
  Age: 59 Year
  Sex: Male

DRUGS (5)
  1. PRADAXA [Suspect]
     Indication: CARDIOVASCULAR EVENT PROPHYLAXIS
     Dosage: 220 MG
     Route: 048
     Dates: start: 20130123, end: 20130215
  2. PRADAXA [Suspect]
     Dosage: 300 MG
     Route: 048
     Dates: start: 20130215, end: 20130221
  3. AVLOCARDYL [Concomitant]
     Route: 048
  4. INEXIUM [Concomitant]
     Route: 048
  5. TAHOR [Concomitant]
     Route: 048

REACTIONS (1)
  - Thrombocytopenia [Recovered/Resolved]
